FAERS Safety Report 4716419-5 (Version None)
Quarter: 2005Q3

REPORT INFORMATION
  Report Type: 
  Country: None (occurrence: None)
  Receive Date: 20050719
  Receipt Date: 20040721
  Transmission Date: 20060218
  Serious: Yes (Hospitalization)
  Sender: FDA-Public Use
  Company Number: US-BRISTOL-MYERS SQUIBB COMPANY-12647665

PATIENT
  Sex: Male
  Weight: 84 kg

DRUGS (4)
  1. PROLIXIN DECANOATE [Suspect]
     Indication: BIPOLAR DISORDER
     Dosage: DOSE DECREASED TO 12.5 MG TIMES ONE ON 25-MAY-2004.
     Route: 030
     Dates: end: 20040525
  2. PROLIXIN DECANOATE [Suspect]
     Indication: SCHIZOPHRENIA
     Dosage: DOSE DECREASED TO 12.5 MG TIMES ONE ON 25-MAY-2004.
     Route: 030
     Dates: end: 20040525
  3. LITHIUM [Concomitant]
  4. HUMULIN 70/30 [Concomitant]
     Dosage: DOSE VALUE:  70/30 20 U IN AM AND 20 U IN PM.

REACTIONS (1)
  - PARKINSONISM [None]
